FAERS Safety Report 22761416 (Version 9)
Quarter: 2024Q1

REPORT INFORMATION
  Report Type: Spontaneous
  Country: US (occurrence: US)
  Receive Date: 20230728
  Receipt Date: 20240321
  Transmission Date: 20240409
  Serious: No
  Sender: FDA-Public Use
  Company Number: US-PFIZER INC-202300195635

PATIENT
  Age: 70 Year
  Sex: Female
  Weight: 58.97 kg

DRUGS (8)
  1. BOSULIF [Suspect]
     Active Substance: BOSUTINIB MONOHYDRATE
     Indication: Chronic myeloid leukaemia
     Dosage: 1 MG, 1X/DAY
     Route: 048
     Dates: start: 202304
  2. BOSULIF [Suspect]
     Active Substance: BOSUTINIB MONOHYDRATE
     Dosage: 2 MG, 1X/DAY
     Route: 048
  3. BOSULIF [Suspect]
     Active Substance: BOSUTINIB MONOHYDRATE
     Dosage: 3 MG, 1X/DAY
     Route: 048
  4. BOSULIF [Suspect]
     Active Substance: BOSUTINIB MONOHYDRATE
     Dosage: 4 MG, 1X/DAY
     Route: 048
  5. BOSULIF [Suspect]
     Active Substance: BOSUTINIB MONOHYDRATE
     Dosage: TAKE 1 (ONE) TABLET (400 MG TOTAL) BY MOUTH DAILY FOR 180 DAYS
     Route: 048
  6. BOSULIF [Suspect]
     Active Substance: BOSUTINIB MONOHYDRATE
     Dosage: 300 MG, 1X/DAY (SHOULD BE TAKEN WITH FOOD)
     Route: 048
  7. BOSULIF [Suspect]
     Active Substance: BOSUTINIB MONOHYDRATE
     Dosage: 300 MG, DAILY (TAKE THREE TABLETS OF 100MG BY MOUTH ONCE DAILY. SHOULD BE TAKEN WITH FOOD)
     Route: 048
  8. SIMVASTATIN [Concomitant]
     Active Substance: SIMVASTATIN
     Dosage: UNK
     Dates: end: 202306

REACTIONS (8)
  - Nausea [Not Recovered/Not Resolved]
  - Diarrhoea [Not Recovered/Not Resolved]
  - Constipation [Not Recovered/Not Resolved]
  - Vomiting [Not Recovered/Not Resolved]
  - Fatigue [Unknown]
  - Hepatic enzyme increased [Recovered/Resolved]
  - Off label use [Unknown]
  - Wrong strength [Unknown]

NARRATIVE: CASE EVENT DATE: 20230101
